FAERS Safety Report 7738129-2 (Version None)
Quarter: 2011Q3

REPORT INFORMATION
  Report Type: 
  Country: None (occurrence: None)
  Receive Date: 20110906
  Receipt Date: 20110906
  Transmission Date: 20111222
  Serious: Yes (Other)
  Sender: FDA-Public Use
  Company Number: 1019801

PATIENT
  Age: 60 Year
  Sex: Female
  Weight: 52 kg

DRUGS (4)
  1. DEXAMETHASONE [Concomitant]
  2. PACLITAXEL [Concomitant]
  3. CARBOPLATIN [Suspect]
     Indication: PRODUCT USED FOR UNKNOWN INDICATION
     Dosage: 585.0MG, ONE EVERY THREE WEEKS, UNKNOWN
  4. ONDANSETRON [Concomitant]

REACTIONS (6)
  - VOMITING [None]
  - HEART RATE INCREASED [None]
  - FEELING HOT [None]
  - BLOOD PRESSURE DECREASED [None]
  - FLUSHING [None]
  - PARAESTHESIA [None]
